FAERS Safety Report 6314479-1 (Version None)
Quarter: 2009Q3

REPORT INFORMATION
  Report Type: 
  Country: None (occurrence: None)
  Receive Date: 20090817
  Receipt Date: 20090805
  Transmission Date: 20100115
  Serious: Yes (Other)
  Sender: FDA-Public Use
  Company Number: 2009002384

PATIENT
  Age: 65 Year
  Sex: Male

DRUGS (2)
  1. TARCEVA [Suspect]
     Dosage: 150 MG, ORAL
     Route: 048
     Dates: start: 20090703
  2. CEPHAMYCIN [Concomitant]

REACTIONS (2)
  - CARCINOID TUMOUR OF THE STOMACH [None]
  - DYSPHAGIA [None]
